FAERS Safety Report 24835658 (Version 2)
Quarter: 2025Q2

REPORT INFORMATION
  Report Type: Report from Study
  Country: US (occurrence: US)
  Receive Date: 20250113
  Receipt Date: 20250407
  Transmission Date: 20250716
  Serious: No
  Sender: SUNOVION
  Company Number: US-SUMITOMO PHARMA SWITZERLAND GMBH-2025SPA000195

PATIENT

DRUGS (1)
  1. ORGOVYX [Suspect]
     Active Substance: RELUGOLIX
     Indication: Prostate cancer
     Dosage: 120 MG, QD
     Route: 048
     Dates: start: 20241115

REACTIONS (6)
  - Bradykinesia [Unknown]
  - Nasopharyngitis [Unknown]
  - Pollakiuria [Unknown]
  - Hot flush [Unknown]
  - Incorrect dose administered [Unknown]
  - Therapy interrupted [Unknown]
